APPROVED DRUG PRODUCT: FLUPHENAZINE HYDROCHLORIDE
Active Ingredient: FLUPHENAZINE HYDROCHLORIDE
Strength: 1MG
Dosage Form/Route: TABLET;ORAL
Application: A216891 | Product #001 | TE Code: AB
Applicant: BRECKENRIDGE PHARMACEUTICAL INC
Approved: Nov 15, 2022 | RLD: No | RS: No | Type: RX